FAERS Safety Report 12659148 (Version 3)
Quarter: 2016Q4

REPORT INFORMATION
  Report Type: Spontaneous
  Country: JP (occurrence: JP)
  Receive Date: 20160817
  Receipt Date: 20161227
  Transmission Date: 20170207
  Serious: Yes (Other)
  Sender: FDA-Public Use
  Company Number: JP-PFIZER INC-2016385053

PATIENT
  Age: 73 Year
  Sex: Male
  Weight: 63 kg

DRUGS (11)
  1. SOLU-CORTEF [Concomitant]
     Active Substance: HYDROCORTISONE SODIUM SUCCINATE
     Dosage: UNK
  2. THEOPHYLLINE [Concomitant]
     Active Substance: THEOPHYLLINE ANHYDROUS
     Dosage: UNK
  3. INTAL [Concomitant]
     Active Substance: CROMOLYN SODIUM
     Dosage: UNK
  4. LYRICA [Suspect]
     Active Substance: PREGABALIN
     Indication: HYPOAESTHESIA
  5. LIORESAL [Concomitant]
     Active Substance: BACLOFEN
     Dosage: UNK
  6. MEPTIN [Concomitant]
     Active Substance: PROCATEROL HYDROCHLORIDE
     Dosage: UNK
  7. FAMOTIDINE. [Concomitant]
     Active Substance: FAMOTIDINE
     Dosage: UNK
  8. SENNOSIDE [Concomitant]
     Active Substance: SENNOSIDES
     Dosage: UNK
  9. CEFTRIAXONE. [Concomitant]
     Active Substance: CEFTRIAXONE
     Dosage: UNK
  10. PRIMPERAN [Concomitant]
     Active Substance: METOCLOPRAMIDE HYDROCHLORIDE
     Dosage: UNK
  11. LYRICA [Suspect]
     Active Substance: PREGABALIN
     Indication: PAIN IN EXTREMITY
     Dosage: 150 MG, 2X/DAY
     Route: 048
     Dates: start: 2012

REACTIONS (3)
  - Oxygen saturation decreased [Unknown]
  - Loss of consciousness [Recovered/Resolved]
  - Weight increased [Unknown]

NARRATIVE: CASE EVENT DATE: 20160622
